FAERS Safety Report 6370823-0 (Version None)
Quarter: 2009Q3

REPORT INFORMATION
  Report Type: 
  Country: None (occurrence: None)
  Receive Date: 20090923
  Receipt Date: 20070627
  Transmission Date: 20100115
  Serious: Yes (Other)
  Sender: FDA-Public Use
  Company Number: US-ASTRAZENECA-2006UW23689

PATIENT
  Sex: Female
  Weight: 50.8 kg

DRUGS (18)
  1. SEROQUEL [Suspect]
     Indication: BIPOLAR DISORDER
     Dosage: 25-600 MG
     Route: 048
     Dates: start: 19981203
  2. ZYPREXA [Concomitant]
  3. KLONAZAPINE [Concomitant]
  4. TOPAMAX [Concomitant]
  5. PREMARIN [Concomitant]
  6. PROTONIX [Concomitant]
  7. HALDOL [Concomitant]
  8. KLONOPIN [Concomitant]
  9. ATIVAN [Concomitant]
  10. ATARAX [Concomitant]
  11. AMBIEN [Concomitant]
  12. GEODON [Concomitant]
  13. DEPAKOTE [Concomitant]
  14. TYLENOL (CAPLET) [Concomitant]
  15. ATROVENT [Concomitant]
  16. PAXIL [Concomitant]
  17. PROZAC [Concomitant]
  18. ANAFRANIL [Concomitant]

REACTIONS (1)
  - NEUROLEPTIC MALIGNANT SYNDROME [None]
